FAERS Safety Report 6587860-3 (Version None)
Quarter: 2010Q1

REPORT INFORMATION
  Report Type: 
  Country: None (occurrence: None)
  Receive Date: 20100218
  Receipt Date: 20100209
  Transmission Date: 20100710
  Serious: Yes (Other)
  Sender: FDA-Public Use
  Company Number: PHEH2008US08951

PATIENT
  Sex: Female

DRUGS (60)
  1. ZOMETA [Suspect]
     Dosage: 4MG MONTHLY
     Dates: start: 20020101, end: 20050210
  2. ZOMETA [Suspect]
     Dosage: UNK
     Dates: start: 20070701, end: 20070801
  3. AREDIA [Suspect]
     Dosage: 90 MG / MONTHLY
     Dates: start: 19980101
  4. CHEMOTHERAPEUTICS NOS [Concomitant]
     Indication: METASTASES TO BONE
     Dosage: UNK
     Dates: start: 19980801
  5. AMOXICILLIN [Concomitant]
  6. COUMADIN [Concomitant]
  7. METHADONE [Concomitant]
     Dosage: 20 MG / EVERY 3 HOURS
  8. RADIATION [Concomitant]
     Indication: METASTASES TO BONE
  9. HERCEPTIN [Concomitant]
     Dosage: 140 MG, UNK
     Dates: end: 20050101
  10. CARBOPLATIN [Concomitant]
  11. FASLODEX [Concomitant]
  12. ARANESP [Concomitant]
  13. CARBOPLATIN [Concomitant]
     Dosage: UNK
     Dates: end: 20040105
  14. TAXOTERE [Concomitant]
     Dosage: 90 MG, UNK
  15. NEULASTA [Concomitant]
  16. GEMZAR [Concomitant]
  17. NAVELBINE [Concomitant]
  18. ARIMIDEX [Concomitant]
  19. PROTONIX [Concomitant]
  20. XELODA [Concomitant]
  21. MEGACE [Concomitant]
  22. FEMARA [Concomitant]
  23. ADRIAMYCIN PFS [Concomitant]
  24. CYTOXAN [Concomitant]
  25. PROCRIT                            /00909301/ [Concomitant]
     Dosage: 40,0000  / WEEKLY
     Route: 058
  26. CIPRO [Concomitant]
     Dosage: 500 MG, BID
     Route: 048
  27. DEMEROL [Concomitant]
     Dosage: 50 MG
  28. PHENERGAN ^AVENTIS PHARMA^ [Concomitant]
     Dosage: 25 MG
  29. DURAGESIC-100 [Concomitant]
     Dosage: 50 MCG / EVERY 3 DAYS
  30. SYNTHROID [Concomitant]
     Dosage: 10 MG
  31. MIRALAX [Concomitant]
     Dosage: UNK
  32. DILAUDID [Concomitant]
     Dosage: 4 MG / AS NEEDED
  33. MUCINEX DM [Concomitant]
     Dosage: UNK
  34. ADVIL [Concomitant]
     Dosage: UNK
  35. EFEXOR                                  /USA/ [Concomitant]
     Dosage: UNK
  36. SALAGEN [Concomitant]
     Dosage: UNK
  37. ZYPREXA [Concomitant]
     Dosage: UNK
  38. DOCUSATE SODIUM [Concomitant]
     Dosage: UNK
  39. TEMAZEPAM [Concomitant]
     Dosage: UNK
  40. ACTIQ [Concomitant]
  41. AUGMENTAN ORAL [Concomitant]
     Dosage: UNK
  42. PERCOCET [Concomitant]
     Dosage: 10/325 / EVERY 4 HOURS
  43. DECADRON                                /CAN/ [Concomitant]
     Dosage: UNK
  44. PROZAC [Concomitant]
     Dosage: UNK
  45. INDOCIN - SLOW RELEASE [Concomitant]
     Dosage: UNK
  46. VIOXX [Concomitant]
     Dosage: UNK
  47. ZOFRAN [Concomitant]
     Dosage: UNK
  48. COMPAZINE [Concomitant]
     Dosage: UNK
  49. POLYETHYLENE GLYCOL [Concomitant]
  50. LYRICA [Concomitant]
  51. MOTRIN [Concomitant]
  52. DOLOPHINE HCL [Concomitant]
  53. FLUZONE [Concomitant]
  54. HALOPERIDOL LACTATE [Concomitant]
  55. TRASTUZUMAB [Concomitant]
  56. DIPHENHYDRAMINE HYDROCHLORIDE [Concomitant]
  57. FENTANYL CITRATE [Concomitant]
  58. MIDAZOLAM HYDROCHLORIDE [Concomitant]
  59. PROPOFOL [Concomitant]
  60. FAMOTIDINE [Concomitant]

REACTIONS (50)
  - ANAEMIA [None]
  - ANAEMIA OF MALIGNANT DISEASE [None]
  - ANHEDONIA [None]
  - ANXIETY [None]
  - AXILLARY MASS [None]
  - BACK PAIN [None]
  - BACTERIAL TEST NEGATIVE [None]
  - BONE DEBRIDEMENT [None]
  - BONE DISORDER [None]
  - BREAST CANCER METASTATIC [None]
  - CENTRAL VENOUS CATHETER REMOVAL [None]
  - CENTRAL VENOUS CATHETERISATION [None]
  - CERVICAL SPINAL STENOSIS [None]
  - COMPRESSION FRACTURE [None]
  - DEAFNESS [None]
  - DENTAL CARIES [None]
  - DENTURE WEARER [None]
  - DEPRESSION [None]
  - DISABILITY [None]
  - EMPHYSEMA [None]
  - GASTRITIS [None]
  - GRANULOCYTOPENIA [None]
  - HOSPICE CARE [None]
  - IMPAIRED HEALING [None]
  - INJURY [None]
  - INTERVERTEBRAL DISC PROTRUSION [None]
  - MALNUTRITION [None]
  - MASTICATION DISORDER [None]
  - METASTASES TO BONE [None]
  - MUSCULOSKELETAL PAIN [None]
  - NAUSEA [None]
  - NECK PAIN [None]
  - NERVE BLOCK [None]
  - OSTEOARTHRITIS [None]
  - OSTEONECROSIS [None]
  - PAIN [None]
  - PANCOAST'S TUMOUR [None]
  - PANCYTOPENIA [None]
  - PYREXIA [None]
  - RED BLOOD CELLS URINE [None]
  - SENSITIVITY OF TEETH [None]
  - SPINAL OSTEOARTHRITIS [None]
  - TOOTH ABSCESS [None]
  - TOOTH EXTRACTION [None]
  - TOOTHACHE [None]
  - URINARY TRACT INFECTION [None]
  - URINE ANALYSIS [None]
  - VOMITING [None]
  - WEIGHT DECREASED [None]
  - WHITE BLOOD CELL COUNT [None]
